FAERS Safety Report 7761590-4 (Version None)
Quarter: 2011Q3

REPORT INFORMATION
  Report Type: 
  Country: None (occurrence: None)
  Receive Date: 20110920
  Receipt Date: 20110909
  Transmission Date: 20111222
  Serious: Yes (Death)
  Sender: FDA-Public Use
  Company Number: BE-UCBSA-041058

PATIENT

DRUGS (3)
  1. VIMPAT [Suspect]
     Indication: EPILEPSY
     Route: 048
  2. VIMPAT [Suspect]
     Indication: PARTIAL SEIZURES
     Dosage: 1 VIAL
     Route: 042
     Dates: start: 20110831
  3. KEPPRA [Suspect]
     Indication: EPILEPSY
     Dosage: DAILY DOSE: 3 G
     Route: 048

REACTIONS (1)
  - SEPTIC SHOCK [None]
